FAERS Safety Report 8798567 (Version 2)
Quarter: 2013Q4

REPORT INFORMATION
  Report Type: Spontaneous
  Country: US (occurrence: US)
  Receive Date: 20120920
  Receipt Date: 20131126
  Transmission Date: 20140711
  Serious: Yes (Hospitalization, Disabling, Other)
  Sender: FDA-Public Use
  Company Number: US-009507513-1204USA00037

PATIENT
  Sex: Male

DRUGS (2)
  1. FOSAMAX [Suspect]
     Indication: OSTEOPENIA
     Dosage: 10 MG, QD
     Route: 048
     Dates: start: 1999, end: 2010
  2. FOSAMAX [Suspect]
     Indication: OSTEOPOROSIS
     Dosage: 70 MG, QW
     Route: 048
     Dates: start: 20060425, end: 2008

REACTIONS (60)
  - Femur fracture [Unknown]
  - Intramedullary rod insertion [Unknown]
  - Femur fracture [Unknown]
  - Fracture nonunion [Unknown]
  - Removal of internal fixation [Unknown]
  - Internal fixation of fracture [Unknown]
  - Femur fracture [Recovering/Resolving]
  - Intramedullary rod insertion [Recovering/Resolving]
  - Surgery [Unknown]
  - Wound dehiscence [Unknown]
  - Debridement [Unknown]
  - Wound infection staphylococcal [Unknown]
  - Malignant melanoma [Unknown]
  - Depression [Unknown]
  - Anxiety [Unknown]
  - Pain [Unknown]
  - Prostate cancer [Unknown]
  - Arthroscopy [Recovering/Resolving]
  - Meniscus removal [Unknown]
  - Impaired healing [Recovered/Resolved]
  - Cancer surgery [Unknown]
  - Knee operation [Unknown]
  - Fracture delayed union [Unknown]
  - Low turnover osteopathy [Unknown]
  - Osteoarthritis [Unknown]
  - Fall [Unknown]
  - Osteoarthritis [Unknown]
  - Meniscus injury [Recovering/Resolving]
  - Muscle atrophy [Unknown]
  - Incision site haematoma [Unknown]
  - Incision site cellulitis [Recovering/Resolving]
  - Wound drainage [Recovering/Resolving]
  - Device failure [Unknown]
  - Device failure [Unknown]
  - Hypertension [Unknown]
  - Fall [Unknown]
  - Osteoarthritis [Unknown]
  - Intervertebral disc degeneration [Unknown]
  - Hypercholesterolaemia [Unknown]
  - Radiotherapy [Unknown]
  - Scoliosis [Unknown]
  - Bursitis [Recovering/Resolving]
  - Raynaud^s phenomenon [Unknown]
  - Inguinal hernia [Unknown]
  - Inguinal hernia repair [Unknown]
  - Cluster headache [Unknown]
  - Nephrolithiasis [Unknown]
  - Lithotripsy [Unknown]
  - Fall [Unknown]
  - Urine calcium [Unknown]
  - Hypokalaemia [Recovered/Resolved]
  - Lower urinary tract symptoms [Unknown]
  - Proctitis [Unknown]
  - Delirium [Unknown]
  - Anaemia postoperative [Unknown]
  - Pain [Not Recovered/Not Resolved]
  - Joint effusion [Unknown]
  - Asthenia [Unknown]
  - Oedema [Unknown]
  - Pain in extremity [Unknown]
